FAERS Safety Report 19172850 (Version 4)
Quarter: 2021Q4

REPORT INFORMATION
  Report Type: Spontaneous
  Country: US (occurrence: US)
  Receive Date: 20210423
  Receipt Date: 20211007
  Transmission Date: 20220303
  Serious: No
  Sender: FDA-Public Use
  Company Number: US-LUPIN PHARMACEUTICALS INC.-2021-05057

PATIENT
  Sex: Female

DRUGS (4)
  1. ALBUTEROL SULFATE [Suspect]
     Active Substance: ALBUTEROL SULFATE
     Indication: Bronchitis
     Dosage: 2 DOSAGE FORM, PRN (EVERY 4 HOURS AS NEEDED, INHALER 1)
     Dates: start: 202103
  2. ALBUTEROL SULFATE [Suspect]
     Active Substance: ALBUTEROL SULFATE
     Dosage: 2 DOSAGE FORM, PRN (EVERY 4 HOURS AS NEEDED, INHALER 2)
     Dates: start: 202104
  3. PREMARIN [Concomitant]
     Active Substance: ESTROGENS, CONJUGATED
     Indication: Hormone therapy
     Dosage: 1.25 MILLIGRAM, QD
     Route: 065
  4. ARMOUR THYROID [Concomitant]
     Active Substance: THYROID, PORCINE
     Indication: Thyroid disorder
     Dosage: 30 MILLIGRAM, QD
     Route: 065

REACTIONS (2)
  - Device delivery system issue [Unknown]
  - No adverse event [Unknown]
